FAERS Safety Report 11045154 (Version 1)
Quarter: 2015Q2

REPORT INFORMATION
  Report Type: Report from Study
  Country: US (occurrence: US)
  Receive Date: 20150417
  Receipt Date: 20150417
  Transmission Date: 20150821
  Serious: Yes (Disabling, Other)
  Sender: FDA-Public Use
  Company Number: US-RECKITT BENCKISER PHARMACEUTICAL, INC-RB-078201-2015

PATIENT
  Age: 57 Year
  Sex: Female

DRUGS (1)
  1. SUBUTEX [Suspect]
     Active Substance: BUPRENORPHINE HYDROCHLORIDE
     Indication: PRODUCT USED FOR UNKNOWN INDICATION
     Dosage: UNK
     Route: 065

REACTIONS (5)
  - Neuropathy peripheral [Not Recovered/Not Resolved]
  - Arthropathy [Not Recovered/Not Resolved]
  - Limb discomfort [Not Recovered/Not Resolved]
  - Tinnitus [Not Recovered/Not Resolved]
  - Peroneal nerve palsy [Not Recovered/Not Resolved]

NARRATIVE: CASE EVENT DATE: 2007
